FAERS Safety Report 6329190-0 (Version None)
Quarter: 2009Q3

REPORT INFORMATION
  Report Type: 
  Country: None (occurrence: None)
  Receive Date: 20090826
  Receipt Date: 20090812
  Transmission Date: 20100115
  Serious: Yes (Hospitalization)
  Sender: FDA-Public Use
  Company Number: FR-SOLVAY-00209004555

PATIENT
  Age: 69 Year
  Sex: Female

DRUGS (7)
  1. PLAVIX [Concomitant]
     Indication: DRUG USE FOR UNKNOWN INDICATION
     Dosage: DAILY DOSE:  UNKNOWN
     Route: 065
  2. COVERSYL 8 MG [Suspect]
     Indication: DRUG USE FOR UNKNOWN INDICATION
     Dosage: DAILY DOSE: 8 MILLIGRAM(S)
     Route: 048
     Dates: end: 20090318
  3. BLEOMYCIN SULFATE [Suspect]
     Indication: DRUG USE FOR UNKNOWN INDICATION
     Dosage: DAILY DOSE:  10MG/M2, FREQUENCY: ONCE A DAY
     Route: 042
     Dates: start: 20081020, end: 20090213
  4. VINBLASTINE [Suspect]
     Indication: DRUG USE FOR UNKNOWN INDICATION
     Dosage: DAILY DOSE:  6MG/M2, FREQUENCY: ONCE A DAY
     Route: 042
     Dates: start: 20081020, end: 20090213
  5. ADRIAMYCIN PFS [Suspect]
     Indication: DRUG USE FOR UNKNOWN INDICATION
     Dosage: DAILY DOSE: 10 MILLIGRAM(S)
     Route: 042
     Dates: start: 20081020, end: 20090213
  6. DACARBAZINE [Suspect]
     Indication: DRUG USE FOR UNKNOWN INDICATION
     Dosage: DAILY DOSE:  375MG/M2, FREQUENCY: ONCE A DAY
     Route: 042
     Dates: start: 20081020, end: 20090213
  7. ATENOLOL [Suspect]
     Indication: DRUG USE FOR UNKNOWN INDICATION
     Dosage: DAILY DOSE: 50 MILLIGRAM(S), FREQUENCY:TWICE A DAY
     Route: 048

REACTIONS (8)
  - AUTOIMMUNE THYROIDITIS [None]
  - GRANULOMA [None]
  - HEPATIC FIBROSIS [None]
  - HYPOTHYROIDISM [None]
  - INFECTION [None]
  - LUNG DISORDER [None]
  - PNEUMONIA [None]
  - SJOGREN'S SYNDROME [None]
